FAERS Safety Report 7780963-7 (Version None)
Quarter: 2011Q3

REPORT INFORMATION
  Report Type: 
  Country: None (occurrence: None)
  Receive Date: 20110927
  Receipt Date: 20110912
  Transmission Date: 20111222
  Serious: Yes (Death)
  Sender: FDA-Public Use
  Company Number: DE-ENDO PHARMACEUTICALS INC.-VANT20110049

PATIENT
  Sex: Male

DRUGS (8)
  1. BICALUTAMIDE [Concomitant]
     Dosage: UNKNOWN
     Route: 065
     Dates: start: 20110501
  2. PAIN MANAGEMENT [Concomitant]
     Dosage: UNKNOWN
     Route: 065
     Dates: start: 20110501
  3. VANTAS [Suspect]
     Indication: PROSTATE CANCER
     Route: 058
     Dates: start: 20110729, end: 20110823
  4. PAMORELIN [Concomitant]
     Dosage: 11.25 MG
     Route: 065
     Dates: start: 20091101
  5. PAIN MANAGEMENT [Concomitant]
     Indication: PALLIATIVE CARE
     Dosage: UNKNOWN
     Route: 065
  6. ANTICOAGULANT THERAPY [Concomitant]
     Dosage: UNKNOWN
     Route: 065
     Dates: start: 20110501
  7. BICALUTAMIDE [Concomitant]
     Dosage: UNKNOWN
     Route: 065
     Dates: start: 20091101
  8. ANTICOAGULANT THERAPY [Concomitant]
     Indication: ANTICOAGULANT THERAPY
     Dosage: UNKNOWN
     Route: 065

REACTIONS (2)
  - CARDIOVASCULAR INSUFFICIENCY [None]
  - PROSTATE CANCER [None]
